FAERS Safety Report 4993948-0 (Version None)
Quarter: 2006Q2

REPORT INFORMATION
  Report Type: 
  Country: None (occurrence: None)
  Receive Date: 20060505
  Receipt Date: 20060503
  Transmission Date: 20061013
  Serious: Yes (Other)
  Sender: FDA-Public Use
  Company Number: US-GLAXOSMITHKLINE-A0604236A

PATIENT
  Sex: Male

DRUGS (6)
  1. LAMICTAL [Suspect]
     Dosage: 200MG THREE TIMES PER DAY
     Route: 048
  2. FOLIC ACID [Concomitant]
  3. SAGE [Concomitant]
  4. MIRTAZAPINE [Concomitant]
  5. GINSENG [Concomitant]
  6. LEMONIN (CHINESE MEDICATION) [Concomitant]

REACTIONS (2)
  - CONVULSION [None]
  - DRUG EFFECT DECREASED [None]
